FAERS Safety Report 4788376-7 (Version None)
Quarter: 2005Q4

REPORT INFORMATION
  Report Type: 
  Country: None (occurrence: None)
  Receive Date: 20051005
  Receipt Date: 20050920
  Transmission Date: 20060501
  Serious: Yes (Death, Hospitalization)
  Sender: FDA-Public Use
  Company Number: US-AMGEN-US151164

PATIENT
  Sex: Male

DRUGS (4)
  1. ARANESP [Suspect]
     Indication: ANAEMIA OF MALIGNANT DISEASE
     Dates: start: 20040101
  2. XELODA [Concomitant]
  3. OXALIPLATIN [Concomitant]
  4. AVASTIN [Concomitant]

REACTIONS (2)
  - COLORECTAL CANCER [None]
  - HAEMORRHAGE [None]
